FAERS Safety Report 11489156 (Version 2)
Quarter: 2015Q4

REPORT INFORMATION
  Report Type: Spontaneous
  Country: JP (occurrence: JP)
  Receive Date: 20150910
  Receipt Date: 20151021
  Transmission Date: 20160304
  Serious: Yes (Death, Other)
  Sender: FDA-Public Use
  Company Number: JP-SA-2015SA137643

PATIENT
  Sex: Male

DRUGS (2)
  1. JEVTANA [Suspect]
     Active Substance: CABAZITAXEL
     Route: 042
  2. JEVTANA [Suspect]
     Active Substance: CABAZITAXEL
     Route: 042

REACTIONS (2)
  - Death [Fatal]
  - Bone marrow failure [Unknown]
